FAERS Safety Report 21748604 (Version 5)
Quarter: 2023Q1

REPORT INFORMATION
  Report Type: Spontaneous
  Country: US (occurrence: US)
  Receive Date: 20221219
  Receipt Date: 20230130
  Transmission Date: 20230417
  Serious: No
  Sender: FDA-Public Use
  Company Number: US-GLAXOSMITHKLINE-USCH2022050060

PATIENT
  Age: 74 Year
  Sex: Male

DRUGS (1)
  1. ADVIL PM [Suspect]
     Active Substance: DIPHENHYDRAMINE CITRATE\IBUPROFEN
     Indication: Middle insomnia
     Dosage: 2 DF, QD
     Dates: start: 20221212

REACTIONS (3)
  - Oral discomfort [Recovered/Resolved]
  - Hypoaesthesia oral [Recovered/Resolved]
  - Product complaint [Unknown]

NARRATIVE: CASE EVENT DATE: 20221212
